FAERS Safety Report 19885303 (Version 1)
Quarter: 2021Q3

REPORT INFORMATION
  Report Type: Spontaneous
  Country: US (occurrence: US)
  Receive Date: 20210927
  Receipt Date: 20210927
  Transmission Date: 20211014
  Serious: Yes (Other)
  Sender: FDA-Public Use
  Company Number: None

PATIENT
  Age: 65 Year
  Sex: Female
  Weight: 61.2 kg

DRUGS (10)
  1. TYLENOL [Concomitant]
     Active Substance: ACETAMINOPHEN
  2. ALOE VERA JUICE [Concomitant]
  3. ALBUTEROL HFA [Concomitant]
     Active Substance: ALBUTEROL SULFATE
  4. ALBUTEROL. [Concomitant]
     Active Substance: ALBUTEROL
  5. SYMBICORT [Concomitant]
     Active Substance: BUDESONIDE\FORMOTEROL FUMARATE DIHYDRATE
  6. LEVSIN [Concomitant]
     Active Substance: HYOSCYAMINE SULFATE
  7. MIRALAX [Concomitant]
     Active Substance: POLYETHYLENE GLYCOL 3350
  8. ONDANSETRON [Suspect]
     Active Substance: ONDANSETRON
     Indication: NAUSEA
     Dosage: ?          QUANTITY:1 TABLET(S);?
     Route: 048
     Dates: start: 20200101, end: 20210701
  9. ACETAMINOPHEN. [Concomitant]
     Active Substance: ACETAMINOPHEN
  10. PROBIOTICS [Concomitant]
     Active Substance: PROBIOTICS NOS

REACTIONS (24)
  - Sinus congestion [None]
  - Abdominal pain [None]
  - Furuncle [None]
  - Dizziness [None]
  - Nausea [None]
  - Diverticulum [None]
  - Muscle spasms [None]
  - Dyspnoea [None]
  - Vomiting [None]
  - Alopecia [None]
  - Abdominal distension [None]
  - Illness [None]
  - Anxiety [None]
  - Haemorrhage [None]
  - Visual impairment [None]
  - Ulcer [None]
  - Cyst [None]
  - Depression [None]
  - Haematochezia [None]
  - Weight decreased [None]
  - Feeling abnormal [None]
  - Cough [None]
  - Fluid retention [None]
  - Fatigue [None]

NARRATIVE: CASE EVENT DATE: 20201001
